FAERS Safety Report 19821156 (Version 2)
Quarter: 2021Q3

REPORT INFORMATION
  Report Type: Report from Study
  Country: GT (occurrence: GT)
  Receive Date: 20210913
  Receipt Date: 20210929
  Transmission Date: 20211014
  Serious: Yes (Other)
  Sender: FDA-Public Use
  Company Number: NVSC2021GT206644

PATIENT
  Sex: Male
  Weight: 72.57 kg

DRUGS (3)
  1. GALVUS MET [Suspect]
     Active Substance: METFORMIN HYDROCHLORIDE\VILDAGLIPTIN
     Indication: DIABETES MELLITUS
     Dosage: 01 DF, BID (ONCE IN THE MORNING AND THE AFTERNOON)
     Route: 048
     Dates: start: 202106
  2. EXFORGE HCT [Suspect]
     Active Substance: AMLODIPINE BESYLATE\HYDROCHLOROTHIAZIDE\VALSARTAN
     Indication: HYPERTENSION
     Dosage: 1 DF, QD (HALF A TABLET IN THE AND AFTER INGESTING FOOD)
     Route: 048
     Dates: start: 202106
  3. EXFORGE [Suspect]
     Active Substance: AMLODIPINE BESYLATE\VALSARTAN
     Indication: HYPERTENSION
     Dosage: 1 DF, BID (ONCE IN THE MORNING AND THE AFTERNOON)
     Route: 048
     Dates: start: 202106

REACTIONS (5)
  - Wrong technique in product usage process [Unknown]
  - Diabetic retinopathy [Recovering/Resolving]
  - Visual impairment [Recovering/Resolving]
  - Overweight [Unknown]
  - Eating disorder [Unknown]
